FAERS Safety Report 7932226-4 (Version None)
Quarter: 2011Q4

REPORT INFORMATION
  Report Type: 
  Country: None (occurrence: None)
  Receive Date: 20111121
  Receipt Date: 20110217
  Transmission Date: 20120403
  Serious: Yes (Other)
  Sender: FDA-Public Use
  Company Number: US-AMGEN-USASP2011009609

PATIENT
  Age: 60 Year
  Sex: Female

DRUGS (4)
  1. FLUOROURACIL [Concomitant]
     Dosage: UNK
  2. VECTIBIX [Suspect]
     Indication: COLORECTAL CANCER METASTATIC
     Dates: start: 20101206
  3. LEUCOVORIN CALCIUM [Concomitant]
     Dosage: UNK
  4. IRINOTECAN HCL [Concomitant]
     Dosage: UNK

REACTIONS (1)
  - DERMATITIS [None]
